FAERS Safety Report 4480913-5 (Version None)
Quarter: 2004Q4

REPORT INFORMATION
  Report Type: 
  Country: None (occurrence: None)
  Receive Date: 20041020
  Receipt Date: 20041020
  Transmission Date: 20050328
  Serious: Yes (Life-Threatening, Other)
  Sender: FDA-Public Use
  Company Number: None

PATIENT
  Age: 66 Year

DRUGS (2)
  1. NASAREL [Suspect]
     Dates: start: 20030811
  2. NASAREL [Suspect]
     Dates: start: 20030815

REACTIONS (2)
  - APHASIA [None]
  - CEREBROVASCULAR ACCIDENT [None]
